FAERS Safety Report 11752827 (Version 1)
Quarter: 2015Q4

REPORT INFORMATION
  Report Type: Report from Study
  Country: US (occurrence: US)
  Receive Date: 20151119
  Receipt Date: 20151119
  Transmission Date: 20160304
  Serious: Yes (Other)
  Sender: FDA-Public Use
  Company Number: US-AMGEN-USASP2015120264

PATIENT
  Age: 55 Year
  Sex: Male

DRUGS (1)
  1. ENBREL [Suspect]
     Active Substance: ETANERCEPT
     Indication: ANKYLOSING SPONDYLITIS
     Dosage: 50 MG, QWK
     Route: 065

REACTIONS (18)
  - Heart rate increased [Unknown]
  - Asthenia [Unknown]
  - Vomiting [Unknown]
  - Cardiac disorder [Unknown]
  - Retching [Unknown]
  - Bedridden [Unknown]
  - Pain [Unknown]
  - Colour blindness [Unknown]
  - Feeling hot [Unknown]
  - Dyspepsia [Unknown]
  - Influenza [Unknown]
  - Abdominal discomfort [Unknown]
  - Dysstasia [Unknown]
  - Eructation [Unknown]
  - Dizziness [Unknown]
  - Blood pressure abnormal [Unknown]
  - Hyperhidrosis [Unknown]
  - Mobility decreased [Unknown]
